FAERS Safety Report 12534633 (Version 3)
Quarter: 2016Q3

REPORT INFORMATION
  Report Type: Spontaneous
  Country: DE (occurrence: DE)
  Receive Date: 20160706
  Receipt Date: 20160802
  Transmission Date: 20161109
  Serious: Yes (Other)
  Sender: FDA-Public Use
  Company Number: DE-ALLERGAN-1661998US

PATIENT
  Age: 66 Year
  Sex: Male
  Weight: 63.99 kg

DRUGS (1)
  1. SALOFALK TABLETS [Suspect]
     Active Substance: MESALAMINE
     Indication: COLITIS ULCERATIVE
     Dosage: 1000 MG, TID
     Route: 048
     Dates: start: 199103

REACTIONS (6)
  - Alveolitis [Recovered/Resolved]
  - Pneumothorax [Recovered/Resolved]
  - Bronchial obstruction [Recovered/Resolved]
  - Bronchiolitis [Recovered/Resolved]
  - Drug ineffective [Unknown]
  - Lung disorder [Recovered/Resolved]

NARRATIVE: CASE EVENT DATE: 1991
